FAERS Safety Report 19922213 (Version 5)
Quarter: 2021Q4

REPORT INFORMATION
  Report Type: Spontaneous
  Country: US (occurrence: US)
  Receive Date: 20211005
  Receipt Date: 20211202
  Transmission Date: 20220303
  Serious: Yes (Hospitalization, Other)
  Sender: FDA-Public Use
  Company Number: US-PFIZER INC-202101264275

PATIENT
  Age: 38 Year
  Sex: Female
  Weight: 74.376 kg

DRUGS (4)
  1. PREMARIN [Suspect]
     Active Substance: ESTROGENS, CONJUGATED
     Indication: Hysterectomy
     Dosage: UNK
     Dates: start: 198506, end: 199909
  2. PREMARIN [Suspect]
     Active Substance: ESTROGENS, CONJUGATED
     Indication: Menopause
  3. SYNTHROID [Concomitant]
     Active Substance: LEVOTHYROXINE SODIUM
     Indication: Thyroid disorder
     Dosage: UNK
     Dates: start: 196506
  4. SYNTHROID [Concomitant]
     Active Substance: LEVOTHYROXINE SODIUM
     Dosage: UNK
     Dates: start: 196509

REACTIONS (9)
  - Breast cancer [Unknown]
  - Intraductal proliferative breast lesion [Unknown]
  - Breast cyst [Unknown]
  - Alopecia [Unknown]
  - Breast calcifications [Not Recovered/Not Resolved]
  - Fibrocystic breast disease [Unknown]
  - Off label use [Unknown]
  - Weight increased [Unknown]
  - Hypertrichosis [Unknown]

NARRATIVE: CASE EVENT DATE: 19850601
